FAERS Safety Report 6764622-5 (Version None)
Quarter: 2010Q2

REPORT INFORMATION
  Report Type: 
  Country: None (occurrence: None)
  Receive Date: 20100609
  Receipt Date: 20100216
  Transmission Date: 20101027
  Serious: No
  Sender: FDA-Public Use
  Company Number: 2010004467

PATIENT
  Age: 21 Month
  Sex: Male
  Weight: 17.2367 kg

DRUGS (2)
  1. CHILDREN'S ZYRTEC ALLERGY [Suspect]
     Indication: ECZEMA
     Dosage: TWO ML ONCE, ORAL
     Route: 048
     Dates: start: 20090901
  2. SALBUTAMOL (SALBUTAMOL) [Concomitant]

REACTIONS (3)
  - OFF LABEL USE [None]
  - PSYCHOMOTOR HYPERACTIVITY [None]
  - WRONG DRUG ADMINISTERED [None]
